FAERS Safety Report 20444610 (Version 1)
Quarter: 2022Q1

REPORT INFORMATION
  Report Type: Spontaneous
  Country: US (occurrence: None)
  Receive Date: 20220207
  Receipt Date: 20220207
  Transmission Date: 20220423
  Serious: Yes (Other)
  Sender: FDA-Public Use
  Company Number: None

PATIENT
  Age: 68 Year
  Sex: Female
  Weight: 65.25 kg

DRUGS (6)
  1. FIRDAPSE [Suspect]
     Active Substance: AMIFAMPRIDINE PHOSPHATE
     Indication: Myasthenic syndrome
     Dates: start: 20190402
  2. MESTINON [Concomitant]
     Active Substance: PYRIDOSTIGMINE BROMIDE
  3. ESTRADIOL [Concomitant]
     Active Substance: ESTRADIOL
  4. chlobetasol propionate [Concomitant]
  5. VITAMIN D3 [Concomitant]
     Active Substance: CHOLECALCIFEROL
  6. PROBIOTICS NOS [Concomitant]
     Active Substance: PROBIOTICS NOS

REACTIONS (9)
  - Product substitution issue [None]
  - Pain in extremity [None]
  - Pain in extremity [None]
  - Balance disorder [None]
  - Therapeutic product effect incomplete [None]
  - Back pain [None]
  - Mobility decreased [None]
  - Asthenia [None]
  - Limb discomfort [None]

NARRATIVE: CASE EVENT DATE: 20190405
